FAERS Safety Report 23885125 (Version 3)
Quarter: 2025Q1

REPORT INFORMATION
  Report Type: Spontaneous
  Country: GB (occurrence: GB)
  Receive Date: 20240522
  Receipt Date: 20250214
  Transmission Date: 20250408
  Serious: Yes (Hospitalization, Other)
  Sender: RANBAXY
  Company Number: GB-SUN PHARMACEUTICAL INDUSTRIES LTD-2024R1-447279

PATIENT
  Age: 78 Year
  Sex: Male

DRUGS (1)
  1. ATORVASTATIN [Suspect]
     Active Substance: ATORVASTATIN
     Indication: Product used for unknown indication
     Route: 065

REACTIONS (1)
  - Immune-mediated myositis [Unknown]
